FAERS Safety Report 5943560-1 (Version None)
Quarter: 2008Q4

REPORT INFORMATION
  Report Type: 
  Country: None (occurrence: None)
  Receive Date: 20081106
  Receipt Date: 20081023
  Transmission Date: 20090506
  Serious: Yes (Hospitalization)
  Sender: FDA-Public Use
  Company Number: CA-ROCHE-593785

PATIENT
  Sex: Female

DRUGS (6)
  1. PEGASYS [Suspect]
     Indication: HEPATITIS C
     Dosage: FORM: PRE-FILLED SYRINGE, INTERRUPTED FOR TWO WEEKS
     Route: 058
     Dates: start: 20080101
  2. PEGASYS [Suspect]
     Route: 058
  3. PEGASYS [Suspect]
     Route: 058
     Dates: start: 20081015
  4. COPEGUS [Suspect]
     Indication: HEPATITIS C
     Dosage: INTERRUPTED FOR TWO WEEKS
     Route: 048
     Dates: start: 20080101
  5. COPEGUS [Suspect]
     Route: 048
  6. COPEGUS [Suspect]
     Route: 048
     Dates: start: 20081015

REACTIONS (2)
  - INTRACRANIAL ANEURYSM [None]
  - SUBARACHNOID HAEMORRHAGE [None]
